FAERS Safety Report 9771164 (Version 1)
Quarter: 2013Q4

REPORT INFORMATION
  Report Type: Spontaneous
  Country: AU (occurrence: AU)
  Receive Date: 20131218
  Receipt Date: 20131218
  Transmission Date: 20140711
  Serious: Yes (Disabling)
  Sender: FDA-Public Use
  Company Number: AU-009507513-1312AUS006912

PATIENT
  Age: 14 Year
  Sex: Male

DRUGS (1)
  1. SINGULAIR [Suspect]
     Indication: ASTHMA
     Dosage: UNK MG, QD
     Route: 048
     Dates: start: 20131010, end: 20131014

REACTIONS (2)
  - Photophobia [Not Recovered/Not Resolved]
  - Migraine [Not Recovered/Not Resolved]
